FAERS Safety Report 8960564 (Version 1)
Quarter: 2012Q4

REPORT INFORMATION
  Report Type: Spontaneous
  Country: US (occurrence: None)
  Receive Date: 20121207
  Receipt Date: 20121207
  Transmission Date: 20130627
  Serious: Yes (Life-Threatening)
  Sender: FDA-Public Use
  Company Number: None

PATIENT
  Age: 48 Year
  Sex: Male
  Weight: 103 kg

DRUGS (1)
  1. EPIPEN [Suspect]

REACTIONS (2)
  - Device ineffective [None]
  - Wrong device used [None]
